FAERS Safety Report 9920429 (Version 1)
Quarter: 2014Q1

REPORT INFORMATION
  Report Type: Spontaneous
  Country: US (occurrence: US)
  Receive Date: 20140224
  Receipt Date: 20140224
  Transmission Date: 20141002
  Serious: No
  Sender: FDA-Public Use
  Company Number: US-GILEAD-2014-0094734

PATIENT
  Sex: Male

DRUGS (2)
  1. SOVALDI [Suspect]
     Indication: CHRONIC HEPATITIS C
     Dosage: 400 MG, UNK
     Route: 065
     Dates: start: 2014
  2. RIBAVIRIN [Concomitant]

REACTIONS (4)
  - Headache [Unknown]
  - Amnesia [Unknown]
  - Anxiety [Unknown]
  - Fatigue [Unknown]
